FAERS Safety Report 4678309-6 (Version None)
Quarter: 2005Q2

REPORT INFORMATION
  Report Type: 
  Country: None (occurrence: None)
  Receive Date: 20050531
  Receipt Date: 20050531
  Transmission Date: 20051028
  Serious: Yes (Disabling)
  Sender: FDA-Public Use
  Company Number: None

PATIENT
  Age: 69 Year
  Sex: Male
  Weight: 83.9154 kg

DRUGS (4)
  1. VIAGRA [Suspect]
     Indication: ERECTILE DYSFUNCTION
     Dosage: 1 TABLET AS NEEDED ORAL
     Route: 048
     Dates: start: 19990806, end: 19990830
  2. KICROCK [Concomitant]
  3. NADOLOL [Concomitant]
  4. PRINZIDE [Concomitant]

REACTIONS (2)
  - BLINDNESS UNILATERAL [None]
  - RETINAL VEIN OCCLUSION [None]
